FAERS Safety Report 16880693 (Version 2)
Quarter: 2019Q4

REPORT INFORMATION
  Report Type: Spontaneous
  Country: US (occurrence: US)
  Receive Date: 20191003
  Receipt Date: 20191023
  Transmission Date: 20200122
  Serious: Yes (Other)
  Sender: FDA-Public Use
  Company Number: US-PFIZER INC-2019418961

PATIENT
  Age: 26 Year
  Sex: Female
  Weight: 114.3 kg

DRUGS (1)
  1. MAGNESIUM SULFATE. [Suspect]
     Active Substance: MAGNESIUM SULFATE
     Indication: PRE-ECLAMPSIA
     Dosage: 20G/500 ML (4 GRAM BOLUS, 20GRAM CONTINUOUS IV INFUSION)
     Dates: start: 20190924, end: 20190925

REACTIONS (2)
  - Maternal exposure during pregnancy [Unknown]
  - Drug ineffective [Recovered/Resolved]

NARRATIVE: CASE EVENT DATE: 20190924
